FAERS Safety Report 15900190 (Version 2)
Quarter: 2019Q1

REPORT INFORMATION
  Report Type: Spontaneous
  Country: JP (occurrence: JP)
  Receive Date: 20190201
  Receipt Date: 20190225
  Transmission Date: 20190417
  Serious: Yes (Hospitalization, Other)
  Sender: FDA-Public Use
  Company Number: JP-APOTEX-2019AP007120

PATIENT

DRUGS (18)
  1. PAXIL [Suspect]
     Active Substance: PAROXETINE HYDROCHLORIDE
     Dosage: 7.5 MG, QD
     Route: 048
  2. PAXIL [Suspect]
     Active Substance: PAROXETINE HYDROCHLORIDE
     Dosage: 1.25 MG, QD
     Route: 048
  3. ETHYL LOFLAZEPATE [Concomitant]
     Active Substance: ETHYL LOFLAZEPATE
     Indication: MAJOR DEPRESSION
     Dosage: 1 MG, QD
     Route: 065
  4. ITOPRIDE HYDROCHLORIDE [Concomitant]
     Active Substance: ITOPRIDE HYDROCHLORIDE
     Indication: MAJOR DEPRESSION
     Dosage: 50 MG, TID
     Route: 065
  5. PAXIL [Suspect]
     Active Substance: PAROXETINE HYDROCHLORIDE
     Dosage: 6.25 MG, QD
     Route: 048
  6. PAXIL [Suspect]
     Active Substance: PAROXETINE HYDROCHLORIDE
     Dosage: 5 MG, QD
     Route: 048
  7. ALPRAZOLAM. [Concomitant]
     Active Substance: ALPRAZOLAM
     Indication: MAJOR DEPRESSION
     Dosage: 0.4 MG, PRN
     Route: 065
  8. PAXIL [Suspect]
     Active Substance: PAROXETINE HYDROCHLORIDE
     Dosage: 10 MG, QD
     Route: 048
  9. MEILAX [Concomitant]
     Active Substance: ETHYL LOFLAZEPATE
     Indication: MAJOR DEPRESSION
     Dosage: 1 MG, QD
     Route: 065
  10. PAXIL [Suspect]
     Active Substance: PAROXETINE HYDROCHLORIDE
     Dosage: 5 MG, QD
     Route: 048
  11. PAXIL [Suspect]
     Active Substance: PAROXETINE HYDROCHLORIDE
     Dosage: 7.5 MG, QD
     Route: 048
  12. PAXIL [Suspect]
     Active Substance: PAROXETINE HYDROCHLORIDE
     Dosage: 6.25 MG, QD
     Route: 048
  13. PAXIL [Suspect]
     Active Substance: PAROXETINE HYDROCHLORIDE
     Dosage: 6.25 MG, QD
     Route: 048
  14. PAXIL [Suspect]
     Active Substance: PAROXETINE HYDROCHLORIDE
     Dosage: 3.75 MG, QD
     Route: 048
  15. PAXIL [Suspect]
     Active Substance: PAROXETINE HYDROCHLORIDE
     Indication: MAJOR DEPRESSION
     Dosage: 20 MG, QD
     Route: 048
  16. PAXIL [Suspect]
     Active Substance: PAROXETINE HYDROCHLORIDE
     Dosage: 15 MG, QD
     Route: 048
  17. PAXIL [Suspect]
     Active Substance: PAROXETINE HYDROCHLORIDE
     Dosage: 5 MG, QD
     Route: 048
  18. PAXIL [Suspect]
     Active Substance: PAROXETINE HYDROCHLORIDE
     Dosage: 2.5 MG, QD
     Route: 048

REACTIONS (15)
  - Dyslalia [Unknown]
  - Mood altered [Unknown]
  - Hemiplegia [Unknown]
  - Restlessness [Unknown]
  - Treatment noncompliance [Unknown]
  - Anxiety [Unknown]
  - Somnolence [Recovered/Resolved]
  - Cerebral infarction [Unknown]
  - Choking sensation [Unknown]
  - Abdominal distension [Unknown]
  - Aerophagia [Unknown]
  - Stress [Unknown]
  - Irritability [Unknown]
  - Withdrawal syndrome [Unknown]
  - Dizziness [Recovered/Resolved]
